FAERS Safety Report 18472541 (Version 1)
Quarter: 2020Q4

REPORT INFORMATION
  Report Type: Spontaneous
  Country: IN (occurrence: IN)
  Receive Date: 20201106
  Receipt Date: 20201106
  Transmission Date: 20210114
  Serious: No
  Sender: FDA-Public Use
  Company Number: IN-ALKEM LABORATORIES LIMITED-IN-ALKEM-2020-05370

PATIENT
  Age: 21 Year
  Sex: Male

DRUGS (1)
  1. LANSOPRAZOLE. [Suspect]
     Active Substance: LANSOPRAZOLE
     Indication: DUODENITIS
     Dosage: UNK
     Route: 065

REACTIONS (1)
  - Galactorrhoea [Unknown]
